FAERS Safety Report 16338107 (Version 3)
Quarter: 2020Q3

REPORT INFORMATION
  Report Type: Spontaneous
  Country: US (occurrence: US)
  Receive Date: 20190521
  Receipt Date: 20200826
  Transmission Date: 20201102
  Serious: Yes (Hospitalization, Other)
  Sender: FDA-Public Use
  Company Number: US-GILEAD-2019-0408034

PATIENT
  Age: 55 Year
  Sex: Male
  Weight: 91 kg

DRUGS (40)
  1. PREZISTA [Concomitant]
     Active Substance: DARUNAVIR ETHANOLATE
     Indication: HIV INFECTION
  2. MELOXICAM. [Concomitant]
     Active Substance: MELOXICAM
  3. SEROQUEL [Concomitant]
     Active Substance: QUETIAPINE FUMARATE
  4. LAMOTRIGINE. [Concomitant]
     Active Substance: LAMOTRIGINE
  5. SULFAMETHOXAZOLE [Concomitant]
     Active Substance: SULFAMETHOXAZOLE
  6. METHYLPREDNISOLONE. [Concomitant]
     Active Substance: METHYLPREDNISOLONE
  7. FISH OIL [Concomitant]
     Active Substance: FISH OIL
  8. TRUVADA [Suspect]
     Active Substance: EMTRICITABINE\TENOFOVIR DISOPROXIL FUMARATE
     Dosage: UNK
     Route: 065
     Dates: start: 20070919, end: 20160630
  9. XANAX [Concomitant]
     Active Substance: ALPRAZOLAM
  10. PREZCOBIX [Concomitant]
     Active Substance: COBICISTAT\DARUNAVIR ETHANOLATE
     Indication: HIV INFECTION
  11. TIVICAY [Concomitant]
     Active Substance: DOLUTEGRAVIR SODIUM
     Indication: HIV INFECTION
  12. NOVOLOG [Concomitant]
     Active Substance: INSULIN ASPART
  13. ACYCLOVIR [ACICLOVIR] [Concomitant]
     Active Substance: ACYCLOVIR
  14. TRAZODONE [Concomitant]
     Active Substance: TRAZODONE HYDROCHLORIDE
  15. DESCOVY [Concomitant]
     Active Substance: EMTRICITABINE\TENOFOVIR ALAFENAMIDE FUMARATE
     Indication: HIV INFECTION
     Dosage: UNK
  16. GABAPENTIN. [Concomitant]
     Active Substance: GABAPENTIN
  17. BACTRIM [Concomitant]
     Active Substance: SULFAMETHOXAZOLE\TRIMETHOPRIM
  18. LOPID [Concomitant]
     Active Substance: GEMFIBROZIL
  19. FINASTERIDE. [Concomitant]
     Active Substance: FINASTERIDE
  20. EFFEXOR [Concomitant]
     Active Substance: VENLAFAXINE HYDROCHLORIDE
  21. INTELENCE [Concomitant]
     Active Substance: ETRAVIRINE
     Indication: HIV INFECTION
  22. ISENTRESS [Concomitant]
     Active Substance: RALTEGRAVIR POTASSIUM
     Indication: HIV INFECTION
  23. LISINOPRIL. [Concomitant]
     Active Substance: LISINOPRIL
  24. DEPAKOTE [Concomitant]
     Active Substance: DIVALPROEX SODIUM
  25. VENLAFAXINE [Concomitant]
     Active Substance: VENLAFAXINE HYDROCHLORIDE
  26. CIPROFLOXACIN. [Concomitant]
     Active Substance: CIPROFLOXACIN
  27. NYSTATIN. [Concomitant]
     Active Substance: NYSTATIN
  28. FLUCONAZOLE. [Concomitant]
     Active Substance: FLUCONAZOLE
  29. TRUVADA [Suspect]
     Active Substance: EMTRICITABINE\TENOFOVIR DISOPROXIL FUMARATE
     Indication: HIV INFECTION
     Dosage: UNK
     Route: 048
     Dates: start: 2010, end: 2014
  30. NORVIR [Concomitant]
     Active Substance: RITONAVIR
     Indication: HIV INFECTION
  31. METFORMIN [Concomitant]
     Active Substance: METFORMIN HYDROCHLORIDE
  32. LANTUS [Concomitant]
     Active Substance: INSULIN GLARGINE
  33. HUMALOG [Concomitant]
     Active Substance: INSULIN LISPRO
  34. DAPSONE. [Concomitant]
     Active Substance: DAPSONE
  35. DIVALPROEX [Concomitant]
     Active Substance: DIVALPROEX SODIUM
  36. FENOFIBRATE. [Concomitant]
     Active Substance: FENOFIBRATE
  37. LIPITOR [Concomitant]
     Active Substance: ATORVASTATIN CALCIUM
  38. TAMSULOSIN [Concomitant]
     Active Substance: TAMSULOSIN
  39. TOUJEO [Concomitant]
     Active Substance: INSULIN GLARGINE
  40. LIVALO [Concomitant]
     Active Substance: PITAVASTATIN CALCIUM

REACTIONS (13)
  - Bone density decreased [Not Recovered/Not Resolved]
  - Emotional distress [Not Recovered/Not Resolved]
  - End stage renal disease [Not Recovered/Not Resolved]
  - Anhedonia [Not Recovered/Not Resolved]
  - General physical health deterioration [Not Recovered/Not Resolved]
  - Quality of life decreased [Not Recovered/Not Resolved]
  - Anxiety [Not Recovered/Not Resolved]
  - Renal disorder [Unknown]
  - Pain [Not Recovered/Not Resolved]
  - Emotional distress [Not Recovered/Not Resolved]
  - Economic problem [Not Recovered/Not Resolved]
  - Fear [Not Recovered/Not Resolved]
  - Pollakiuria [Not Recovered/Not Resolved]

NARRATIVE: CASE EVENT DATE: 201211
